FAERS Safety Report 7371404-2 (Version None)
Quarter: 2011Q1

REPORT INFORMATION
  Report Type: 
  Country: None (occurrence: None)
  Receive Date: 20110322
  Receipt Date: 20110322
  Transmission Date: 20110831
  Serious: Yes (Hospitalization)
  Sender: FDA-Public Use
  Company Number: None

PATIENT
  Sex: Male
  Weight: 107.5025 kg

DRUGS (1)
  1. REVLIMID [Suspect]
     Dosage: LENALIDOMIDE 25MG DAILY PO
     Route: 048
     Dates: start: 20110126, end: 20110316

REACTIONS (6)
  - DIARRHOEA [None]
  - CHEST PAIN [None]
  - NAUSEA [None]
  - GASTROENTERITIS VIRAL [None]
  - ABDOMINAL PAIN [None]
  - VOMITING [None]
